FAERS Safety Report 25895775 (Version 1)
Quarter: 2025Q4

REPORT INFORMATION
  Report Type: Spontaneous
  Country: US (occurrence: US)
  Receive Date: 20251008
  Receipt Date: 20251008
  Transmission Date: 20260117
  Serious: No
  Sender: EISAI
  Company Number: US-Eisai-EC-2025-196652

PATIENT
  Age: 70 Year
  Sex: Female

DRUGS (3)
  1. LENVATINIB [Suspect]
     Active Substance: LENVATINIB
     Indication: Parathyroid tumour malignant
     Dosage: FREQUENCY UNKNOWN
     Route: 048
  2. DENOSUMAB [Concomitant]
     Active Substance: DENOSUMAB
  3. CINACALCET [Concomitant]
     Active Substance: CINACALCET

REACTIONS (2)
  - Hypertension [Unknown]
  - Renal impairment [Unknown]
